FAERS Safety Report 8766167 (Version 1)
Quarter: 2012Q4

REPORT INFORMATION
  Report Type: Report from Study
  Country: JP (occurrence: JP)
  Receive Date: 20120904
  Receipt Date: 20120904
  Transmission Date: 20130627
  Serious: Yes (Other)
  Sender: FDA-Public Use
  Company Number: JP-009507513-2012SP025631

PATIENT

DRUGS (6)
  1. PEGINTERFERON ALFA-2B [Suspect]
     Indication: HEPATITIS C
     Dosage: 1.5Microgram per kilogram, QW
     Route: 058
     Dates: start: 20120315, end: 20120615
  2. REBETOL [Suspect]
     Indication: HEPATITIS C
     Dosage: 600 mg/kg, QD
     Route: 048
     Dates: start: 20120315, end: 20120406
  3. REBETOL [Suspect]
     Dosage: 400 mg, QD
     Route: 048
     Dates: start: 20120406
  4. TELAVIC [Suspect]
     Indication: HEPATITIS C
     Dosage: 2250 mg, QD
     Route: 048
     Dates: start: 20120315, end: 20120318
  5. PRIMPERAN [Concomitant]
     Indication: NAUSEA
     Dosage: 3 UNK, UNK
     Route: 048
     Dates: start: 20120406, end: 20120615
  6. ALLELOCK [Concomitant]
     Route: 048

REACTIONS (1)
  - Generalised erythema [Recovering/Resolving]
